FAERS Safety Report 17665341 (Version 1)
Quarter: 2020Q2

REPORT INFORMATION
  Report Type: Spontaneous
  Country: US (occurrence: US)
  Receive Date: 20200413
  Receipt Date: 20200413
  Transmission Date: 20200713
  Serious: Yes (Hospitalization)
  Sender: FDA-Public Use
  Company Number: None

PATIENT
  Age: 76 Year
  Sex: Male
  Weight: 95 kg

DRUGS (2)
  1. PYRIDIUM [Suspect]
     Active Substance: PHENAZOPYRIDINE
  2. BACTRIM [Suspect]
     Active Substance: SULFAMETHOXAZOLE\TRIMETHOPRIM

REACTIONS (11)
  - Hyperhidrosis [None]
  - White blood cell count increased [None]
  - Dizziness [None]
  - Creatinine renal clearance decreased [None]
  - Nephrolithiasis [None]
  - Congenital megaureter [None]
  - Hypotension [None]
  - Hydronephrosis [None]
  - Methaemoglobinaemia [None]
  - Dyspnoea [None]
  - Nitrite urine present [None]

NARRATIVE: CASE EVENT DATE: 20200413
